FAERS Safety Report 21784030 (Version 1)
Quarter: 2022Q4

REPORT INFORMATION
  Report Type: Spontaneous
  Country: US (occurrence: US)
  Receive Date: 20221227
  Receipt Date: 20221227
  Transmission Date: 20230113
  Serious: No
  Sender: FDA-Public Use
  Company Number: US-PFIZER INC-202100993014

PATIENT
  Age: 54 Year
  Sex: Female
  Weight: 45.714 kg

DRUGS (18)
  1. VFEND [Suspect]
     Active Substance: VORICONAZOLE
     Indication: Immunosuppression
     Dosage: 0.8 MG, 1X/DAY
     Dates: start: 20210720
  2. VFEND [Suspect]
     Active Substance: VORICONAZOLE
     Indication: Infection prophylaxis
     Dosage: 200 MG, 2X/DAY [TAKE 200 MG EVERY 12 HOURS]
  3. PROGRAF [Concomitant]
     Active Substance: TACROLIMUS
     Indication: Immunosuppression
     Dosage: UNK (0.8MG,  1.6 ML)
  4. PREDNISOLONE [Concomitant]
     Active Substance: PREDNISOLONE
     Indication: Immunosuppression
     Dosage: 10 MG, 3X/DAY (3 X 10 MG TABLET, 9AM)
  5. BACTRIM [Concomitant]
     Active Substance: SULFAMETHOXAZOLE\TRIMETHOPRIM
     Indication: Infection prophylaxis
     Dosage: UNK, 1X/DAY (1 X 1 TABLET)
  6. VALCYTE [Concomitant]
     Active Substance: VALGANCICLOVIR HYDROCHLORIDE
     Indication: Infection prophylaxis
     Dosage: 450 MG, 1X/DAY
  7. ASPIRIN [Concomitant]
     Active Substance: ASPIRIN
     Indication: Prophylaxis
     Dosage: 81 MG, 1X/DAY
  8. TUMS [Concomitant]
     Active Substance: CALCIUM CARBONATE
     Indication: Drug therapy
     Dosage: 500 MG, 2X/DAY (1PM-500MG, 9PM-500MG)
  9. PEPCID [Concomitant]
     Active Substance: FAMOTIDINE
     Indication: Dyspepsia
     Dosage: 40 MG, 1X/DAY (9PM: 40MG)
  10. FLORINEF ACETATE [Concomitant]
     Active Substance: FLUDROCORTISONE ACETATE
     Dosage: 0.1 MG, 1X/DAY (9AM: 0.1 MG)
  11. LASIX [Concomitant]
     Active Substance: FUROSEMIDE
     Indication: Drug therapy
     Dosage: 20 MG, 1X/DAY (1PM: 20MG)
  12. MAGNESIUM OXIDE [Concomitant]
     Active Substance: MAGNESIUM OXIDE
     Indication: Mineral supplementation
     Dosage: 400 MG, 2X/DAY (400 MG 1PM AND 9PM)
  13. REMERON [Concomitant]
     Active Substance: MIRTAZAPINE
     Indication: Appetite disorder
     Dosage: 7.5 MG, 1X/DAY (9PM: 7.5MG)
  14. REMERON [Concomitant]
     Active Substance: MIRTAZAPINE
     Indication: Affective disorder
  15. PROTONIX [Concomitant]
     Active Substance: PANTOPRAZOLE SODIUM
     Indication: Prophylaxis against gastrointestinal ulcer
     Dosage: 40 MG, 1X/DAY (9AM: 40MG)
  16. SODIUM CHLORIDE [Concomitant]
     Active Substance: SODIUM CHLORIDE
     Indication: Supplementation therapy
     Dosage: 1 G, 2X/DAY (1GM 1PM AND 5PM)
  17. VITAMIN D3 [Concomitant]
     Active Substance: CHOLECALCIFEROL
     Indication: Drug therapy
     Dosage: UNK, 1X/DAY (1PM: 2000 UNITS)
  18. MYCOPHENOLATE MOFETIL [Concomitant]
     Active Substance: MYCOPHENOLATE MOFETIL
     Indication: Immunosuppression
     Dosage: UNK

REACTIONS (2)
  - Liver disorder [Unknown]
  - Off label use [Unknown]

NARRATIVE: CASE EVENT DATE: 20210720
